FAERS Safety Report 6460488-1 (Version None)
Quarter: 2009Q4

REPORT INFORMATION
  Report Type: 
  Country: None (occurrence: None)
  Receive Date: 20091130
  Receipt Date: 20091117
  Transmission Date: 20100525
  Serious: Yes (Hospitalization)
  Sender: FDA-Public Use
  Company Number: US-JNJFOC-20090901258

PATIENT
  Sex: Female
  Weight: 36.29 kg

DRUGS (7)
  1. DURAGESIC-100 [Suspect]
     Route: 062
  2. DURAGESIC-100 [Suspect]
     Indication: PAIN IN EXTREMITY
     Route: 062
  3. ANESTHESIA UNSPECIFIED [Suspect]
     Indication: ANAESTHESIA
     Route: 065
  4. EFFEXOR XR [Concomitant]
     Indication: HOT FLUSH
     Route: 048
  5. BRETHINE [Concomitant]
     Indication: ASTHMA
     Route: 048
  6. PREDNISONE [Concomitant]
     Indication: ASTHMA
     Route: 048
  7. COLCHICINE [Concomitant]
     Indication: CHONDROCALCINOSIS PYROPHOSPHATE
     Route: 048

REACTIONS (4)
  - APPLICATION SITE PRURITUS [None]
  - ASTHMA [None]
  - DRUG ADMINISTERED AT INAPPROPRIATE SITE [None]
  - DRUG HYPERSENSITIVITY [None]
